FAERS Safety Report 9161232 (Version 3)
Quarter: 2013Q2

REPORT INFORMATION
  Report Type: Spontaneous
  Country: FR (occurrence: FR)
  Receive Date: 20130313
  Receipt Date: 20130506
  Transmission Date: 20140414
  Serious: Yes (Hospitalization)
  Sender: FDA-Public Use
  Company Number: FR-GLAXOSMITHKLINE-B0872662A

PATIENT
  Age: 59 Year
  Sex: Female

DRUGS (5)
  1. DEROXAT [Suspect]
     Indication: DEPRESSION
     Dosage: 10MG IN THE MORNING
     Route: 048
     Dates: start: 201212, end: 20130222
  2. LOXAPAC [Concomitant]
     Indication: AGITATION
     Route: 065
  3. VALIUM [Concomitant]
     Indication: AGITATION
     Route: 065
  4. NICOTINELL [Concomitant]
     Dosage: 21MG UNKNOWN
     Route: 065
  5. DAFALGAN [Concomitant]
     Indication: PAIN
     Dosage: 1G AS REQUIRED
     Route: 065

REACTIONS (14)
  - Cerebral haemorrhage [Not Recovered/Not Resolved]
  - Frontotemporal dementia [Unknown]
  - Disorientation [Unknown]
  - Abnormal behaviour [Unknown]
  - Balance disorder [Unknown]
  - Hemiparesis [Not Recovered/Not Resolved]
  - Anterograde amnesia [Unknown]
  - Hallucination [Unknown]
  - Tremor [Not Recovered/Not Resolved]
  - CSF protein increased [Unknown]
  - CSF immunoglobulin increased [Unknown]
  - Blood thyroid stimulating hormone decreased [Unknown]
  - Goitre [Unknown]
  - Cerebral haematoma [Unknown]
